FAERS Safety Report 5580940-0 (Version None)
Quarter: 2007Q4

REPORT INFORMATION
  Report Type: 
  Country: None (occurrence: None)
  Receive Date: 20071227
  Receipt Date: 20071221
  Transmission Date: 20080405
  Serious: Yes (Hospitalization)
  Sender: FDA-Public Use
  Company Number: S07-USA-05772-01

PATIENT
  Age: 79 Year
  Sex: Female
  Weight: 117.028 kg

DRUGS (4)
  1. TIAZAC [Suspect]
     Indication: HYPERTENSION
     Dosage: 460 MG QD PO
     Route: 048
  2. ZESTRIL [Suspect]
     Indication: HYPERTENSION
     Dosage: 20 MG QD
     Dates: start: 20000101, end: 20060401
  3. LASIX [Concomitant]
  4. LIPITOR [Concomitant]

REACTIONS (1)
  - HYPERSENSITIVITY [None]
